FAERS Safety Report 10646049 (Version 1)
Quarter: 2014Q4

REPORT INFORMATION
  Report Type: Spontaneous
  Country: US (occurrence: None)
  Receive Date: 20141203
  Receipt Date: 20141203
  Transmission Date: 20150529
  Serious: Yes (Life-Threatening, Hospitalization)
  Sender: FDA-Public Use
  Company Number: 1323260

PATIENT
  Age: 71 Year
  Sex: Female
  Weight: 76 kg

DRUGS (5)
  1. DOXORUBICIN [Concomitant]
     Active Substance: DOXORUBICIN
  2. AMLODIPINE [Concomitant]
     Active Substance: AMLODIPINE BESYLATE
  3. CYCLOPHOSPHAMIDE (CYCLOPHOSPHAMIDE) [Suspect]
     Active Substance: CYCLOPHOSPHAMIDE
     Indication: BREAST CANCER
     Dosage: 600 MG/M2, 1 IN 2 WK, INTRAVENOUS
     Route: 042
     Dates: start: 20130731, end: 20130912
  4. HERCEPTIN [Suspect]
     Active Substance: TRASTUZUMAB
     Indication: BREAST CANCER
     Dosage: RECEIVED 11 DOSES 2MG/KG (150MG, 1 IN 1WK), INTRAVENOUS DRIP
     Dates: start: 20130926, end: 20131206
  5. PACLITAXEL. [Concomitant]
     Active Substance: PACLITAXEL

REACTIONS (2)
  - Pulmonary fibrosis [None]
  - Interstitial lung disease [None]

NARRATIVE: CASE EVENT DATE: 201312
